FAERS Safety Report 10794459 (Version 3)
Quarter: 2015Q2

REPORT INFORMATION
  Report Type: Spontaneous
  Country: US (occurrence: US)
  Receive Date: 20150213
  Receipt Date: 20150414
  Transmission Date: 20150821
  Serious: Yes (Other)
  Sender: FDA-Public Use
  Company Number: US-ASTRAZENECA-2015SE14468

PATIENT
  Age: 21901 Day
  Sex: Male
  Weight: 116.1 kg

DRUGS (14)
  1. BYETTA [Suspect]
     Active Substance: EXENATIDE
     Route: 065
     Dates: start: 200807, end: 201112
  2. NASONEX [Concomitant]
     Active Substance: MOMETASONE FUROATE
     Dates: start: 20110515
  3. PREVACID [Concomitant]
     Active Substance: LANSOPRAZOLE
     Dates: start: 20040714
  4. BYETTA [Suspect]
     Active Substance: EXENATIDE
     Route: 065
     Dates: start: 20111015
  5. JANUVIA [Suspect]
     Active Substance: SITAGLIPTIN PHOSPHATE
     Route: 065
     Dates: start: 20130124
  6. VICTOZA [Suspect]
     Active Substance: LIRAGLUTIDE
     Route: 065
     Dates: end: 2008
  7. DEXILANT DR [Concomitant]
     Dates: start: 20121026
  8. GLIMEPIRIDE. [Concomitant]
     Active Substance: GLIMEPIRIDE
  9. JANUVIA [Suspect]
     Active Substance: SITAGLIPTIN PHOSPHATE
     Route: 065
     Dates: start: 201301, end: 201308
  10. RAMIPRIL. [Concomitant]
     Active Substance: RAMIPRIL
  11. ONDANSETRON HCL [Concomitant]
     Active Substance: ONDANSETRON HYDROCHLORIDE
     Dates: start: 20140516
  12. METFORMIN [Concomitant]
     Active Substance: METFORMIN HYDROCHLORIDE
  13. BYETTA [Suspect]
     Active Substance: EXENATIDE
     Route: 065
     Dates: start: 20080724
  14. ACTOS [Concomitant]
     Active Substance: PIOGLITAZONE HYDROCHLORIDE
     Dates: start: 20110806

REACTIONS (5)
  - Metastases to liver [Unknown]
  - Pancreatic carcinoma [Unknown]
  - Computerised tomogram thorax abnormal [Unknown]
  - Ill-defined disorder [Unknown]
  - Lymphadenopathy [Unknown]

NARRATIVE: CASE EVENT DATE: 20140214
